FAERS Safety Report 7042455-2 (Version None)
Quarter: 2010Q4

REPORT INFORMATION
  Report Type: 
  Country: None (occurrence: None)
  Receive Date: 20101013
  Receipt Date: 20091112
  Transmission Date: 20110411
  Serious: No
  Sender: FDA-Public Use
  Company Number: US-ASTRAZENECA-2009SE26212

PATIENT
  Age: 61 Year
  Sex: Female

DRUGS (6)
  1. SYMBICORT [Suspect]
     Indication: BRONCHITIS CHRONIC
     Dosage: 160/4.5 AS DIRECTED FOR 30 DAYS
     Route: 055
     Dates: start: 20090101, end: 20091109
  2. BENICAR [Concomitant]
  3. METFORMIN [Concomitant]
  4. ESTRADIOL [Concomitant]
  5. OXYBUTIN [Concomitant]
  6. GENERIC TESSALON PERLES [Concomitant]

REACTIONS (2)
  - CHEST DISCOMFORT [None]
  - DYSPNOEA [None]
